FAERS Safety Report 13502604 (Version 2)
Quarter: 2017Q2

REPORT INFORMATION
  Report Type: Report from Study
  Country: US (occurrence: AR)
  Receive Date: 20170502
  Receipt Date: 20170531
  Transmission Date: 20170830
  Serious: Yes (Hospitalization, Other)
  Sender: FDA-Public Use
  Company Number: US-SUNOVION-2017SUN001802

PATIENT
  Sex: Male

DRUGS (1)
  1. ARCAPTA NEOHALER [Suspect]
     Active Substance: INDACATEROL MALEATE
     Indication: CHRONIC OBSTRUCTIVE PULMONARY DISEASE
     Dosage: 150 ?G, QD
     Route: 065

REACTIONS (7)
  - Cholelithiasis [Unknown]
  - Pseudocyst [Unknown]
  - Asthenia [Recovering/Resolving]
  - Malaise [Recovering/Resolving]
  - Vomiting [Unknown]
  - Pancreatitis [Recovering/Resolving]
  - Chronic obstructive pulmonary disease [Recovering/Resolving]
